FAERS Safety Report 9813093 (Version 4)
Quarter: 2014Q2

REPORT INFORMATION
  Report Type: Other
  Country: US (occurrence: US)
  Receive Date: 20140113
  Receipt Date: 20140402
  Transmission Date: 20141212
  Serious: Yes (Death, Hospitalization, Other)
  Sender: FDA-Public Use
  Company Number: US-ACORDA-ACO_101102_2014

PATIENT
  Age: 55 Year
  Sex: Female
  Weight: 62.13 kg

DRUGS (7)
  1. AMPYRA [Suspect]
     Indication: GAIT DISTURBANCE
     Dosage: 10 MG, BID
     Route: 048
     Dates: start: 20100615, end: 20131029
  2. TIZANIDINE [Suspect]
     Indication: MUSCLE SPASTICITY
     Dosage: 4 MG, BID
     Route: 048
     Dates: start: 2009, end: 20131029
  3. BACLOFEN [Concomitant]
     Indication: MUSCLE SPASTICITY
     Dosage: 20 MG, TID
     Route: 048
     Dates: start: 2000, end: 20131029
  4. ASCORBIC ACID [Concomitant]
     Indication: AMINO ACID LEVEL INCREASED
     Dosage: 500 MG, QD
     Route: 048
  5. OMEPRAZOLE [Concomitant]
     Indication: GASTROOESOPHAGEAL REFLUX DISEASE
     Dosage: 20 MG, QD
     Route: 048
     Dates: start: 2000, end: 20131029
  6. ASPIRIN [Concomitant]
     Indication: PRODUCT USED FOR UNKNOWN INDICATION
     Dosage: 81 MG, QD
     Route: 048
     Dates: start: 2000, end: 20131029
  7. IMURAN [Concomitant]
     Indication: MULTIPLE SCLEROSIS
     Dosage: 50 MG, QD
     Route: 048
     Dates: start: 200810, end: 20131029

REACTIONS (3)
  - Lung adenocarcinoma [Fatal]
  - Respiratory distress [Unknown]
  - Urinary tract infection [Unknown]
